FAERS Safety Report 14938408 (Version 2)
Quarter: 2018Q2

REPORT INFORMATION
  Report Type: Spontaneous
  Country: US (occurrence: US)
  Receive Date: 20180525
  Receipt Date: 20180611
  Transmission Date: 20180711
  Serious: Yes (Death)
  Sender: FDA-Public Use
  Company Number: US-BEH-2018090902

PATIENT
  Age: 72 Year
  Sex: Female

DRUGS (6)
  1. HUMAN IMMUNOGLOBULIN IV (INN) [Suspect]
     Active Substance: HUMAN IMMUNOGLOBULIN G
     Indication: POLYMYOSITIS
  2. SIMVASTATIN. [Concomitant]
     Active Substance: SIMVASTATIN
     Indication: HYPERLIPIDAEMIA
     Route: 065
  3. HUMAN IMMUNOGLOBULIN IV (INN) [Suspect]
     Active Substance: HUMAN IMMUNOGLOBULIN G
     Indication: THYMOMA
     Route: 042
  4. LEVOTHYROXINE. [Concomitant]
     Active Substance: LEVOTHYROXINE
     Indication: HYPOTHYROIDISM
     Route: 065
  5. PREDNISONE. [Suspect]
     Active Substance: PREDNISONE
     Indication: THYMOMA
     Route: 065
  6. PREDNISONE. [Suspect]
     Active Substance: PREDNISONE
     Indication: POLYMYOSITIS

REACTIONS (1)
  - Drug ineffective for unapproved indication [Fatal]
